FAERS Safety Report 23046537 (Version 1)
Quarter: 2023Q4

REPORT INFORMATION
  Report Type: Spontaneous
  Country: US (occurrence: US)
  Receive Date: 20231009
  Receipt Date: 20231009
  Transmission Date: 20240109
  Serious: Yes (Hospitalization, Other)
  Sender: FDA-Public Use
  Company Number: US-AMGEN-USASP2023173945

PATIENT

DRUGS (1)
  1. INFLIXIMAB [Suspect]
     Active Substance: INFLIXIMAB
     Indication: Immune-mediated enterocolitis
     Dosage: UNK
     Route: 065

REACTIONS (11)
  - Immune-mediated enterocolitis [Unknown]
  - Neoplasm progression [Unknown]
  - Genitourinary tract neoplasm [Unknown]
  - Endocrine neoplasm malignant [Unknown]
  - Haematological malignancy [Unknown]
  - Head and neck cancer [Unknown]
  - Breast cancer [Unknown]
  - Malignant melanoma [Unknown]
  - Diarrhoea [Unknown]
  - Treatment failure [Unknown]
  - Off label use [Unknown]
